FAERS Safety Report 14814017 (Version 2)
Quarter: 2018Q4

REPORT INFORMATION
  Report Type: Spontaneous
  Country: FR (occurrence: FR)
  Receive Date: 20180426
  Receipt Date: 20181025
  Transmission Date: 20190204
  Serious: Yes (Other)
  Sender: FDA-Public Use
  Company Number: FR-MERCK KGAA-2046594

PATIENT
  Age: 52 Year
  Sex: Female

DRUGS (1)
  1. EUTHYROX [Suspect]
     Active Substance: LEVOTHYROXINE SODIUM
     Indication: HYPOTHYROIDISM

REACTIONS (41)
  - Libido decreased [None]
  - Blood thyroid stimulating hormone increased [None]
  - Tri-iodothyronine free increased [None]
  - Thyroglobulin increased [None]
  - Dizziness [None]
  - Hot flush [None]
  - Night sweats [None]
  - Asthenia [None]
  - Mobility decreased [None]
  - Anti-thyroid antibody positive [None]
  - Hyperthyroidism [None]
  - Tachycardia [None]
  - Self esteem decreased [None]
  - Ageusia [None]
  - Mental impairment [None]
  - Visual acuity reduced [None]
  - Headache [None]
  - Throat tightness [None]
  - Nervousness [None]
  - Depression [None]
  - Insomnia [None]
  - Mood swings [None]
  - Decreased interest [None]
  - Psychiatric symptom [None]
  - General physical health deterioration [None]
  - Dyspnoea [None]
  - Nausea [None]
  - Alopecia [None]
  - Fatigue [None]
  - Anxiety [None]
  - Disturbance in attention [None]
  - Impaired driving ability [None]
  - Decreased activity [None]
  - Stomach mass [None]
  - Anger [None]
  - Negative thoughts [None]
  - Malaise [None]
  - Palpitations [None]
  - Dark circles under eyes [None]
  - Motor dysfunction [None]
  - Social avoidant behaviour [None]

NARRATIVE: CASE EVENT DATE: 20171102
